FAERS Safety Report 19745726 (Version 1)
Quarter: 2021Q3

REPORT INFORMATION
  Report Type: Spontaneous
  Country: FR (occurrence: FR)
  Receive Date: 20210825
  Receipt Date: 20210825
  Transmission Date: 20211014
  Serious: Yes (Death, Hospitalization)
  Sender: FDA-Public Use
  Company Number: FR-CELGENEUS-FRA-20210604131

PATIENT
  Age: 60 Year
  Sex: Female
  Weight: 66 kg

DRUGS (20)
  1. TRUXIMA [Suspect]
     Active Substance: RITUXIMAB-ABBS
     Indication: CENTRAL NERVOUS SYSTEM LYMPHOMA
     Dosage: 375 MILLIGRAM/SQ. METER
     Route: 041
     Dates: start: 202008, end: 20210428
  2. TITANIUM DIOXIDE. [Concomitant]
     Active Substance: TITANIUM DIOXIDE
     Indication: PRODUCT USED FOR UNKNOWN INDICATION
     Route: 065
  3. POLYSORBATE 80. [Concomitant]
     Active Substance: POLYSORBATE 80
     Indication: PRODUCT USED FOR UNKNOWN INDICATION
     Route: 048
  4. POVIDONE EXCIPIENT [Concomitant]
     Indication: PRODUCT USED FOR UNKNOWN INDICATION
     Route: 048
  5. CARBOXYMETHYL STARCH [Concomitant]
     Indication: PRODUCT USED FOR UNKNOWN INDICATION
     Route: 065
  6. SODIUM [Concomitant]
     Active Substance: SODIUM
     Indication: PRODUCT USED FOR UNKNOWN INDICATION
     Route: 065
  7. ZELITREX [Concomitant]
     Active Substance: VALACYCLOVIR HYDROCHLORIDE
     Indication: ANTIVIRAL PROPHYLAXIS
     Route: 048
     Dates: start: 202008, end: 20210517
  8. MAGNESIUM STEARATE [Concomitant]
     Active Substance: MAGNESIUM STEARATE
     Indication: PRODUCT USED FOR UNKNOWN INDICATION
     Route: 048
  9. MICROCRYSTALLINE CELLULOSE [Concomitant]
     Active Substance: CELLULOSE, MICROCRYSTALLINE
     Indication: PRODUCT USED FOR UNKNOWN INDICATION
     Route: 065
  10. MACROGOL [Concomitant]
     Active Substance: POLYETHYLENE GLYCOLS
     Indication: PRODUCT USED FOR UNKNOWN INDICATION
     Route: 065
  11. MAGNESIUM [Concomitant]
     Active Substance: MAGNESIUM
     Indication: PRODUCT USED FOR UNKNOWN INDICATION
     Route: 065
  12. SULFAMETHOXAZOLE [Concomitant]
     Active Substance: SULFAMETHOXAZOLE
     Indication: PRODUCT USED FOR UNKNOWN INDICATION
     Route: 048
     Dates: start: 202008, end: 20210517
  13. VALACICLOVIR [Concomitant]
     Active Substance: VALACYCLOVIR HYDROCHLORIDE
     Indication: PRODUCT USED FOR UNKNOWN INDICATION
     Route: 048
     Dates: start: 202008, end: 20210517
  14. REVLIMID [Suspect]
     Active Substance: LENALIDOMIDE
     Indication: CENTRAL NERVOUS SYSTEM LYMPHOMA
     Route: 048
     Dates: start: 20210428, end: 20210517
  15. IMBRUVICA [Suspect]
     Active Substance: IBRUTINIB
     Indication: CENTRAL NERVOUS SYSTEM LYMPHOMA
     Route: 048
     Dates: start: 20210428, end: 20210519
  16. CROSPOVIDONE [Concomitant]
     Active Substance: CROSPOVIDONE
     Indication: PRODUCT USED FOR UNKNOWN INDICATION
     Route: 065
  17. HYPROMELLOSE [Concomitant]
     Active Substance: HYPROMELLOSES
     Indication: PRODUCT USED FOR UNKNOWN INDICATION
     Route: 065
  18. COLLOIDAL ANHYDRUS SILICA [Concomitant]
     Indication: PRODUCT USED FOR UNKNOWN INDICATION
     Route: 048
  19. TRIMETHOPRIM. [Concomitant]
     Active Substance: TRIMETHOPRIM
     Indication: PRODUCT USED FOR UNKNOWN INDICATION
     Route: 065
  20. BACTRIM [Concomitant]
     Active Substance: SULFAMETHOXAZOLE\TRIMETHOPRIM
     Indication: ANTIBIOTIC PROPHYLAXIS
     Route: 048
     Dates: start: 202008, end: 20210517

REACTIONS (2)
  - Central nervous system lymphoma [Fatal]
  - Drug reaction with eosinophilia and systemic symptoms [Recovering/Resolving]

NARRATIVE: CASE EVENT DATE: 20210512
